FAERS Safety Report 9248083 (Version 6)
Quarter: 2014Q3

REPORT INFORMATION
  Report Type: Spontaneous
  Country: US (occurrence: US)
  Receive Date: 20130423
  Receipt Date: 20140721
  Transmission Date: 20150326
  Serious: Yes (Hospitalization, Disabling, Other)
  Sender: FDA-Public Use
  Company Number: US-009507513-1304USA009219

PATIENT
  Sex: Female
  Weight: 82.54 kg

DRUGS (2)
  1. ALENDRONATE SODIUM. [Suspect]
     Active Substance: ALENDRONATE SODIUM
     Indication: OSTEOPENIA
     Dosage: 70 MG, QW
     Route: 048
     Dates: start: 20080229, end: 20110331
  2. FOSAMAX [Suspect]
     Active Substance: ALENDRONATE SODIUM
     Indication: OSTEOPENIA
     Dosage: 70 MG, QW
     Route: 048
     Dates: start: 20010717

REACTIONS (30)
  - Cerebrovascular accident [Unknown]
  - Depression [Unknown]
  - Antiphospholipid syndrome [Unknown]
  - Urinary incontinence [Unknown]
  - Disability [Not Recovered/Not Resolved]
  - Low turnover osteopathy [Unknown]
  - Urinary tract infection [Unknown]
  - Blood cholesterol increased [Unknown]
  - Migraine [Unknown]
  - Arthroscopy [Unknown]
  - Bursitis [Unknown]
  - Sepsis [Unknown]
  - Haemoglobin decreased [Unknown]
  - Bursitis [Recovered/Resolved]
  - Anxiety [Unknown]
  - Nephrolithiasis [Unknown]
  - Fibromyalgia [Unknown]
  - Back pain [Unknown]
  - Pneumonia [Unknown]
  - Foot fracture [Unknown]
  - Femur fracture [Recovered/Resolved]
  - Open reduction of fracture [Unknown]
  - Multiple fractures [Unknown]
  - Knee arthroplasty [Unknown]
  - Cardio-respiratory arrest [Unknown]
  - Hypertension [Unknown]
  - Carpal tunnel syndrome [Unknown]
  - Cerebrovascular disorder [Unknown]
  - Osteoarthritis [Unknown]
  - Skin lesion [Unknown]

NARRATIVE: CASE EVENT DATE: 2005
